FAERS Safety Report 6515125-4 (Version None)
Quarter: 2009Q4

REPORT INFORMATION
  Report Type: 
  Country: None (occurrence: None)
  Receive Date: 20091223
  Receipt Date: 20091218
  Transmission Date: 20100525
  Serious: Yes (Other)
  Sender: FDA-Public Use
  Company Number: DE-RANBAXY-2009RR-29843

PATIENT
  Age: 29 Year
  Sex: Male
  Weight: 73 kg

DRUGS (1)
  1. ISOTRETINOIN [Suspect]
     Indication: ACNE
     Dosage: 40 MG, UNK
     Dates: start: 20090101

REACTIONS (13)
  - AGGRESSION [None]
  - APATHY [None]
  - CONFUSIONAL STATE [None]
  - DECREASED APPETITE [None]
  - DISORIENTATION [None]
  - HAEMARTHROSIS [None]
  - HALLUCINATION, AUDITORY [None]
  - HYPNAGOGIC HALLUCINATION [None]
  - IMPAIRED HEALING [None]
  - LIP DRY [None]
  - NEUROSIS [None]
  - SCAR [None]
  - SCHIZOPHRENIA [None]
